FAERS Safety Report 9054694 (Version 1)
Quarter: 2013Q1

REPORT INFORMATION
  Report Type: Spontaneous
  Country: FR (occurrence: FR)
  Receive Date: 20130208
  Receipt Date: 20130208
  Transmission Date: 20140127
  Serious: Yes (Hospitalization)
  Sender: FDA-Public Use
  Company Number: FR-009507513-2009SP037112

PATIENT
  Age: 50 Year
  Sex: Male

DRUGS (3)
  1. VIRAFERONPEG [Suspect]
     Indication: HEPATITIS C VIRUS TEST POSITIVE
     Dosage: 1.5 ?G/KG, QW
     Route: 058
     Dates: start: 20081115, end: 20090717
  2. COPEGUS [Suspect]
     Indication: HEPATITIS C VIRUS TEST POSITIVE
     Route: 048
     Dates: start: 20081115, end: 20090717
  3. PROGRAF [Suspect]
     Indication: GRAFT VERSUS HOST DISEASE IN LIVER
     Dosage: 8.5 MG, BID
     Route: 048
     Dates: start: 2006, end: 200909

REACTIONS (3)
  - Cardiac failure [Recovering/Resolving]
  - Pleural effusion [Recovering/Resolving]
  - Dyspnoea [Recovering/Resolving]
